FAERS Safety Report 23343359 (Version 3)
Quarter: 2024Q1

REPORT INFORMATION
  Report Type: Report from Study
  Country: US (occurrence: US)
  Receive Date: 20231227
  Receipt Date: 20240320
  Transmission Date: 20240409
  Serious: No
  Sender: FDA-Public Use
  Company Number: US-AstraZeneca-CH-00533496A

PATIENT
  Sex: Male

DRUGS (1)
  1. ULTOMIRIS [Suspect]
     Active Substance: RAVULIZUMAB-CWVZ
     Indication: Myasthenia gravis
     Dosage: UNK
     Route: 041
     Dates: start: 20231214

REACTIONS (10)
  - General physical health deterioration [Not Recovered/Not Resolved]
  - Diplopia [Recovered/Resolved]
  - Feeling abnormal [Unknown]
  - Gait disturbance [Recovering/Resolving]
  - Speech disorder [Unknown]
  - Intervertebral disc protrusion [Unknown]
  - Muscular weakness [Unknown]
  - Asthenia [Unknown]
  - Dysphonia [Unknown]
  - Periorbital discomfort [Unknown]

NARRATIVE: CASE EVENT DATE: 20231220
